FAERS Safety Report 9016608 (Version 1)
Quarter: 2013Q1

REPORT INFORMATION
  Report Type: Spontaneous
  Country: US (occurrence: US)
  Receive Date: 20130117
  Receipt Date: 20130117
  Transmission Date: 20140127
  Serious: No
  Sender: FDA-Public Use
  Company Number: US-BIOGENIDEC-2013BI004311

PATIENT
  Age: 58 Year
  Sex: Male

DRUGS (1)
  1. TYSABRI [Suspect]
     Indication: MULTIPLE SCLEROSIS
     Route: 042
     Dates: start: 20110208

REACTIONS (4)
  - Cerebral ventricle dilatation [Unknown]
  - Joint swelling [Recovered/Resolved]
  - Local swelling [Recovered/Resolved]
  - Ankyloglossia congenital [Not Recovered/Not Resolved]
